FAERS Safety Report 4310968-X (Version None)
Quarter: 2004Q1

REPORT INFORMATION
  Report Type: 
  Country: None (occurrence: None)
  Receive Date: 20040302
  Receipt Date: 20040220
  Transmission Date: 20041129
  Serious: Yes (Hospitalization, Other)
  Sender: FDA-Public Use
  Company Number: NSADSS2001004664

PATIENT
  Age: 42 Year
  Sex: Male
  Weight: 75 kg

DRUGS (5)
  1. REMICADE [Suspect]
     Indication: RHEUMATOID ARTHRITIS
     Dosage: SEE IMAGE
     Route: 041
     Dates: start: 20010119, end: 20010119
  2. REMICADE [Suspect]
     Indication: RHEUMATOID ARTHRITIS
     Dosage: SEE IMAGE
     Route: 041
     Dates: start: 20010202, end: 20010202
  3. METHOTREXATE [Suspect]
     Indication: RHEUMATOID ARTHRITIS
  4. NEOCYCLOSPORIN (ALL OTHER THERAPEUTIC PRODUCTS) [Suspect]
     Indication: RHEUMATOID ARTHRITIS
  5. STEROIDS (CORTICOSTEROID NOS) [Suspect]
     Indication: RHEUMATOID ARTHRITIS

REACTIONS (22)
  - BIOPSY BONE MARROW ABNORMAL [None]
  - BLINDNESS TRANSIENT [None]
  - BLOOD DISORDER [None]
  - CEREBRAL ISCHAEMIA [None]
  - CHOLESTASIS [None]
  - DRUG RESISTANCE [None]
  - GLOMERULONEPHRITIS [None]
  - GLUCOSE TOLERANCE IMPAIRED [None]
  - HYPERTENSION [None]
  - IATROGENIC INJURY [None]
  - INTRACRANIAL VENOUS SINUS THROMBOSIS [None]
  - LIVER DISORDER [None]
  - MALNUTRITION [None]
  - NEPHRITIS INTERSTITIAL [None]
  - NEUTROPHILIA [None]
  - NORMOCHROMIC NORMOCYTIC ANAEMIA [None]
  - OSTEOPOROTIC FRACTURE [None]
  - PITUITARY-DEPENDENT CUSHING'S SYNDROME [None]
  - POLYARTHRITIS [None]
  - RENAL FAILURE ACUTE [None]
  - RENAL VASCULITIS [None]
  - SPINAL COMPRESSION FRACTURE [None]
